FAERS Safety Report 9018582 (Version 2)
Quarter: 2013Q1

REPORT INFORMATION
  Report Type: Spontaneous
  Country: US (occurrence: US)
  Receive Date: 20130118
  Receipt Date: 20130125
  Transmission Date: 20140127
  Serious: Yes (Hospitalization, Other)
  Sender: FDA-Public Use
  Company Number: US-PFIZER INC-2013021735

PATIENT
  Age: 57 Year
  Sex: Male
  Weight: 140 kg

DRUGS (7)
  1. EFFEXOR [Suspect]
     Dosage: UNK
  2. PROTONIX [Suspect]
     Dosage: UNK
  3. ALDACTONE [Suspect]
     Dosage: UNK
  4. CLONAZEPAM [Concomitant]
     Dosage: UNK
  5. LASIX [Concomitant]
     Dosage: UNK
  6. ENALAPRIL [Concomitant]
     Dosage: UNK
  7. TAMSULOSIN [Concomitant]
     Dosage: UNK

REACTIONS (2)
  - Oesophageal ulcer [Unknown]
  - Oesophageal haemorrhage [Unknown]
